FAERS Safety Report 8110595-2 (Version None)
Quarter: 2012Q1

REPORT INFORMATION
  Report Type: 
  Country: None (occurrence: None)
  Receive Date: 20120203
  Receipt Date: 20120127
  Transmission Date: 20120608
  Serious: No
  Sender: FDA-Public Use
  Company Number: US-PFIZER INC-2012027320

PATIENT
  Sex: Female

DRUGS (19)
  1. ACTONEL [Suspect]
     Dosage: UNK
  2. HYDROMORPHONE HCL [Suspect]
     Dosage: UNK
  3. LEVBID [Suspect]
     Dosage: UNK
  4. OXYCODONE HYDROCHLORIDE [Suspect]
     Dosage: UNK
  5. FLUTICASONE PROPIONATE [Suspect]
     Dosage: UNK
  6. NAPROXEN [Suspect]
     Dosage: UNK
  7. NALBUPHINE HYDROCHLORIDE [Suspect]
     Dosage: UNK
  8. CLARINEX [Suspect]
     Dosage: UNK
  9. FLOVENT [Suspect]
     Dosage: UNK
  10. FORMOTEROL FUMARATE [Suspect]
     Dosage: UNK
  11. MAGNESIUM SULFATE [Suspect]
     Dosage: UNK
  12. PROTONIX [Suspect]
     Dosage: UNK
  13. PROCARDIA [Suspect]
     Dosage: UNK
  14. AZMACORT [Suspect]
     Dosage: UNK
  15. NEXIUM [Suspect]
     Dosage: UNK
  16. ADVAIR DISKUS 100/50 [Suspect]
     Dosage: UNK
  17. MELOXICAM [Suspect]
     Dosage: UNK
  18. INTAL [Suspect]
     Dosage: UNK
  19. MS CONTIN [Suspect]
     Dosage: UNK

REACTIONS (1)
  - DRUG HYPERSENSITIVITY [None]
